FAERS Safety Report 6765596-3 (Version None)
Quarter: 2010Q2

REPORT INFORMATION
  Report Type: 
  Country: None (occurrence: None)
  Receive Date: 20100611
  Receipt Date: 20100602
  Transmission Date: 20101027
  Serious: Yes (Other)
  Sender: FDA-Public Use
  Company Number: CA-JNJFOC-20100602575

PATIENT
  Sex: Male
  Weight: 94 kg

DRUGS (6)
  1. REMICADE [Suspect]
     Indication: COLITIS ULCERATIVE
     Route: 042
  2. ALTACE [Concomitant]
     Route: 048
  3. FERROUS GLUCONATE [Concomitant]
  4. RABEPRAZOLE SODIUM [Concomitant]
     Route: 048
  5. CRESTOR [Concomitant]
     Route: 048
  6. PREDNISONE [Concomitant]
     Route: 048

REACTIONS (2)
  - MASS [None]
  - SKIN CANCER [None]
